FAERS Safety Report 6672225-6 (Version None)
Quarter: 2010Q2

REPORT INFORMATION
  Report Type: 
  Country: None (occurrence: None)
  Receive Date: 20100408
  Receipt Date: 20100330
  Transmission Date: 20101027
  Serious: No
  Sender: FDA-Public Use
  Company Number: US-BIOGENIDEC-2010BI010920

PATIENT
  Sex: Female

DRUGS (3)
  1. AVONEX [Suspect]
     Indication: MULTIPLE SCLEROSIS
     Route: 030
     Dates: end: 20030901
  2. AVONEX [Suspect]
     Route: 030
     Dates: start: 20100115
  3. AVONEX [Suspect]
     Route: 030
     Dates: start: 20100326

REACTIONS (5)
  - BRUXISM [None]
  - CONTUSION [None]
  - FALL [None]
  - MIGRAINE [None]
  - PAIN IN EXTREMITY [None]
